FAERS Safety Report 14322941 (Version 1)
Quarter: 2017Q4

REPORT INFORMATION
  Report Type: Spontaneous
  Country: US (occurrence: US)
  Receive Date: 20171226
  Receipt Date: 20171226
  Transmission Date: 20180321
  Serious: Yes (Death)
  Sender: FDA-Public Use
  Company Number: US-INSYS THERAPEUTICS, INC-INS201712-000697

PATIENT
  Age: 17 Year
  Sex: Female

DRUGS (4)
  1. FENTANYL. [Suspect]
     Active Substance: FENTANYL
     Dates: start: 2016
  2. METHYLPHENIDATE (EXTENDED RELEASE) [Suspect]
     Active Substance: METHYLPHENIDATE
     Indication: PRODUCT USED FOR UNKNOWN INDICATION
     Route: 048
     Dates: start: 2016
  3. FENTANYL. [Suspect]
     Active Substance: FENTANYL
     Indication: PRODUCT USED FOR UNKNOWN INDICATION
     Route: 048
     Dates: start: 2016
  4. METHYLPHENIDATE (EXTENDED RELEASE) [Suspect]
     Active Substance: METHYLPHENIDATE
     Dates: start: 2016

REACTIONS (5)
  - Exposure via ingestion [None]
  - Cardio-respiratory arrest [Fatal]
  - Analgesic drug level increased [None]
  - Incorrect route of drug administration [Unknown]
  - Exposure via inhalation [None]

NARRATIVE: CASE EVENT DATE: 2016
